FAERS Safety Report 8617267-6 (Version None)
Quarter: 2012Q3

REPORT INFORMATION
  Report Type: 
  Country: None (occurrence: None)
  Receive Date: 20120823
  Receipt Date: 20120810
  Transmission Date: 20120928
  Serious: No
  Sender: FDA-Public Use
  Company Number: US-ASTRAZENECA-2010SE20459

PATIENT
  Age: 60 Year
  Sex: Female

DRUGS (1)
  1. ATACAND [Suspect]
     Route: 048

REACTIONS (5)
  - MALABSORPTION [None]
  - HEADACHE [None]
  - TENSION HEADACHE [None]
  - BLOOD PRESSURE INCREASED [None]
  - PARAESTHESIA [None]
